FAERS Safety Report 17417587 (Version 1)
Quarter: 2020Q1

REPORT INFORMATION
  Report Type: Spontaneous
  Country: CN (occurrence: CN)
  Receive Date: 20200213
  Receipt Date: 20200213
  Transmission Date: 20200409
  Serious: Yes (Hospitalization, Other)
  Sender: FDA-Public Use
  Company Number: CN-009507513-2002CHN002358

PATIENT
  Age: 90 Year
  Sex: Male
  Weight: 40 kg

DRUGS (2)
  1. TIENAM (IV) [Suspect]
     Active Substance: CILASTATIN SODIUM\IMIPENEM
     Indication: SEPTIC SHOCK
     Dosage: 0.5 GRAM, Q6H
     Route: 041
     Dates: start: 20200125, end: 20200130
  2. TIENAM (IV) [Suspect]
     Active Substance: CILASTATIN SODIUM\IMIPENEM
     Dosage: 0.5 GRAM, Q12H
     Route: 041
     Dates: start: 20200130

REACTIONS (4)
  - Renal impairment [Unknown]
  - Muscle twitching [Recovering/Resolving]
  - Drug level abnormal [Unknown]
  - Muscle twitching [Recovering/Resolving]

NARRATIVE: CASE EVENT DATE: 2020
